FAERS Safety Report 4996202-6 (Version None)
Quarter: 2006Q2

REPORT INFORMATION
  Report Type: 
  Country: None (occurrence: None)
  Receive Date: 20060504
  Receipt Date: 20060421
  Transmission Date: 20061013
  Serious: Yes (Other)
  Sender: FDA-Public Use
  Company Number: B0421832A

PATIENT
  Sex: Female

DRUGS (3)
  1. COMBIVIR [Suspect]
     Indication: HIV INFECTION
     Dosage: 1 TABLET / TWICE PER DAY / TRANSPLACENT
     Route: 064
  2. NEVIRAPINE [Suspect]
     Indication: HIV INFECTION
     Dosage: 200 MG / SEE DOSAGE TEXT / TRANSPLAC
     Route: 064
  3. PROCAINE PENICILLIN (PENICILLIN G PROCAINE) [Suspect]
     Indication: SYPHILIS TEST
     Dosage: TRANSPLACENTARY
     Route: 064

REACTIONS (3)
  - CAESAREAN SECTION [None]
  - DRUG EXPOSURE DURING PREGNANCY [None]
  - FOETAL DISTRESS SYNDROME [None]
